FAERS Safety Report 8172924-3 (Version None)
Quarter: 2012Q1

REPORT INFORMATION
  Report Type: 
  Country: None (occurrence: None)
  Receive Date: 20120229
  Receipt Date: 20120221
  Transmission Date: 20120608
  Serious: Yes (Life-Threatening)
  Sender: FDA-Public Use
  Company Number: CN-BRISTOL-MYERS SQUIBB COMPANY-16417552

PATIENT
  Age: 52 Year
  Sex: Male
  Weight: 50 kg

DRUGS (3)
  1. VINORELBINE [Suspect]
     Indication: NON-SMALL CELL LUNG CANCER
     Dosage: D1,D8,12JUL11-19JUL11(7DAYS),09AUG11-16AUG11 1.4286MG,NO OF CYCLES:2
     Route: 042
     Dates: start: 20110712
  2. CISPLATIN [Suspect]
     Indication: NON-SMALL CELL LUNG CANCER
     Dosage: 09AUG11-09AUG11(1DAY) 4.2857 MG,NO OF CYCLES:2
     Route: 041
     Dates: start: 20110712
  3. CETUXIMAB [Suspect]
     Indication: NON-SMALL CELL LUNG CANCER
     Dosage: 05-05JUL11,12JUL11-UNK 56.2857 MG,09AUG11-16AUG11 50MG,NO OF CYCLES:2
     Route: 041
     Dates: start: 20110705

REACTIONS (1)
  - BONE MARROW FAILURE [None]
